FAERS Safety Report 6502104-6 (Version None)
Quarter: 2009Q4

REPORT INFORMATION
  Report Type: 
  Country: None (occurrence: None)
  Receive Date: 20091216
  Receipt Date: 20091204
  Transmission Date: 20100525
  Serious: Yes (Other)
  Sender: FDA-Public Use
  Company Number: PA-GENENTECH-295683

PATIENT
  Sex: Male
  Weight: 69.4 kg

DRUGS (4)
  1. RITUXIMAB [Suspect]
     Indication: NON-HODGKIN'S LYMPHOMA STAGE IV
     Dosage: 700 MG, Q21D
     Route: 042
     Dates: start: 20090803, end: 20091027
  2. CYCLOPHOSPHAMIDE [Suspect]
     Indication: NON-HODGKIN'S LYMPHOMA STAGE IV
     Dosage: 1395 MG, Q21D
     Route: 042
     Dates: start: 20090803, end: 20091005
  3. VINCRISTINE [Concomitant]
     Indication: NON-HODGKIN'S LYMPHOMA STAGE IV
     Dosage: 2 MG, Q21D
     Route: 042
     Dates: start: 20090803, end: 20091005
  4. PREDNISONE [Concomitant]
     Indication: NON-HODGKIN'S LYMPHOMA STAGE IV
     Dosage: 100 MG, UNK
     Route: 048
     Dates: start: 20091005

REACTIONS (1)
  - ORGANISING PNEUMONIA [None]
